FAERS Safety Report 23523307 (Version 2)
Quarter: 2024Q1

REPORT INFORMATION
  Report Type: Spontaneous
  Country: FR (occurrence: None)
  Receive Date: 20240214
  Receipt Date: 20240322
  Transmission Date: 20240409
  Serious: Yes (Life-Threatening)
  Sender: FDA-Public Use
  Company Number: 2024A037434

PATIENT
  Age: 24106 Day
  Sex: Female

DRUGS (1)
  1. SYMBICORT [Suspect]
     Active Substance: BUDESONIDE\FORMOTEROL FUMARATE DIHYDRATE
     Indication: Asthma
     Dosage: 2 PUFFS IN THE MORNING, 2 PUFFS IN THE EVENING,200 UG
     Route: 055
     Dates: start: 202012

REACTIONS (3)
  - Asthmatic crisis [Unknown]
  - Device defective [Unknown]
  - Wrong technique in device usage process [Unknown]

NARRATIVE: CASE EVENT DATE: 20240101
